FAERS Safety Report 16729817 (Version 1)
Quarter: 2019Q3

REPORT INFORMATION
  Report Type: Spontaneous
  Country: IN (occurrence: IN)
  Receive Date: 20190822
  Receipt Date: 20190822
  Transmission Date: 20191005
  Serious: Yes (Death)
  Sender: FDA-Public Use
  Company Number: IN-BEH-2019105884

PATIENT
  Age: 48 Year
  Sex: Male

DRUGS (4)
  1. ALBUMIN HUMAN (INN) [Suspect]
     Active Substance: ALBUMIN HUMAN
     Indication: HEPATITIS CHOLESTATIC
     Route: 042
  2. ALBUMIN HUMAN (INN) [Suspect]
     Active Substance: ALBUMIN HUMAN
     Indication: OEDEMA PERIPHERAL
  3. TENOFOVIR [Suspect]
     Active Substance: TENOFOVIR
     Indication: HEPATITIS CHOLESTATIC
     Route: 065
  4. ALBUMIN HUMAN (INN) [Suspect]
     Active Substance: ALBUMIN HUMAN
     Indication: ASCITES

REACTIONS (1)
  - Drug ineffective [Fatal]
